FAERS Safety Report 25544548 (Version 2)
Quarter: 2025Q3

REPORT INFORMATION
  Report Type: Spontaneous
  Country: US (occurrence: US)
  Receive Date: 20250711
  Receipt Date: 20250718
  Transmission Date: 20251021
  Serious: Yes (Other)
  Sender: Kenvue
  Company Number: US-KENVUE-20250701055

PATIENT
  Sex: Female

DRUGS (4)
  1. NEUTROGENA ULTRA SHEER BODY MIST SUNSCREEN BROAD SPECTRUM SPF 70 (AVO\ [Suspect]
     Active Substance: AVOBENZONE\HOMOSALATE\OCTISALATE\OCTOCRYLENE
     Indication: Prophylaxis against solar radiation
     Route: 061
     Dates: start: 2018
  2. NEUTROGENA ULTRA SHEER MOISTURIZING FACE SERUM SUNSCREEN BROAD SPECTRU [Suspect]
     Active Substance: AVOBENZONE\HOMOSALATE\OCTISALATE\OCTOCRYLENE
     Indication: Product used for unknown indication
     Route: 061
  3. TITANIUM DIOXIDE\ZINC OXIDE [Suspect]
     Active Substance: TITANIUM DIOXIDE\ZINC OXIDE
     Indication: Product used for unknown indication
     Route: 061
  4. CLEAN AND CLEAR PERSA-GEL 10 MAXIMUM STRENGTH [Suspect]
     Active Substance: BENZOYL PEROXIDE
     Indication: Product used for unknown indication
     Route: 061

REACTIONS (1)
  - Malignant melanoma [Unknown]
